FAERS Safety Report 10245895 (Version 2)
Quarter: 2014Q3

REPORT INFORMATION
  Report Type: Spontaneous
  Country: CA (occurrence: CA)
  Receive Date: 20140619
  Receipt Date: 20140717
  Transmission Date: 20150326
  Serious: Yes (Hospitalization, Other)
  Sender: FDA-Public Use
  Company Number: CA-AMGEN-CANSP2014043945

PATIENT
  Age: 47 Year
  Sex: Male

DRUGS (1)
  1. SENSIPAR [Suspect]
     Active Substance: CINACALCET HYDROCHLORIDE
     Indication: RENAL FAILURE CHRONIC
     Dosage: 90 MG, UNK
     Route: 065
     Dates: start: 20111004, end: 20140226

REACTIONS (2)
  - Renal failure [Not Recovered/Not Resolved]
  - Thyroidectomy [Recovered/Resolved]

NARRATIVE: CASE EVENT DATE: 20140226
